FAERS Safety Report 6479996-2 (Version None)
Quarter: 2009Q4

REPORT INFORMATION
  Report Type: 
  Country: None (occurrence: None)
  Receive Date: 20091208
  Receipt Date: 20091202
  Transmission Date: 20100525
  Serious: Yes (Hospitalization)
  Sender: FDA-Public Use
  Company Number: JP-SANOFI-AVENTIS-2009SA005798

PATIENT
  Age: 50 Year
  Sex: Male
  Weight: 73 kg

DRUGS (11)
  1. FUROSEMIDE [Suspect]
     Route: 048
  2. SPIRONOLACTONE [Suspect]
     Route: 048
  3. NATEGLINIDE [Suspect]
  4. LOSARTAN POTASSIUM [Concomitant]
     Route: 048
  5. VERAPAMIL HCL [Concomitant]
     Route: 048
  6. CILOSTAZOL [Concomitant]
     Route: 048
  7. ALLOPURINOL [Concomitant]
     Route: 048
  8. RANITIDINE HYDROCHLORIDE [Concomitant]
     Route: 048
  9. THIAMAZOLE [Concomitant]
     Route: 048
  10. BISOPROLOL FUMARATE [Concomitant]
     Route: 048
  11. WARFARIN SODIUM [Concomitant]
     Route: 048

REACTIONS (4)
  - ACUTE PRERENAL FAILURE [None]
  - DEHYDRATION [None]
  - DRUG LEVEL INCREASED [None]
  - HYPOGLYCAEMIA [None]
